FAERS Safety Report 9377084 (Version 5)
Quarter: 2013Q3

REPORT INFORMATION
  Report Type: Report from Study
  Country: JP (occurrence: JP)
  Receive Date: 20130701
  Receipt Date: 20130819
  Transmission Date: 20140515
  Serious: Yes (Death, Hospitalization)
  Sender: FDA-Public Use
  Company Number: JP-PFIZER INC-2013190747

PATIENT
  Age: 74 Year
  Sex: Male
  Weight: 37.8 kg

DRUGS (12)
  1. XALKORI [Suspect]
     Indication: NON-SMALL CELL LUNG CANCER
     Dosage: 250 MG, 2X/DAY
     Route: 048
     Dates: start: 20130606, end: 20130621
  2. DECADRON [Concomitant]
     Dosage: 1.0 MG, 1X/DAY
     Route: 048
     Dates: start: 20130514, end: 20130622
  3. RIZE [Concomitant]
     Dosage: 5 MG, 1X/DAY
     Route: 048
     Dates: start: 20130511, end: 20130622
  4. NEXIUM [Concomitant]
     Dosage: 20 MG, 1X/DAY
     Route: 048
     Dates: start: 20130417, end: 20130622
  5. LOXONIN [Concomitant]
     Dosage: 60 MG, 2X/DAY
     Route: 048
     Dates: start: 20130413, end: 20130622
  6. ASTOMIN [Concomitant]
     Dosage: 10 MG, 3X/DAY
     Route: 048
     Dates: start: 20130321, end: 20130622
  7. OPISEZOL-CODEINE [Concomitant]
     Dosage: 1.5 ML, 4X/DAY
     Route: 048
     Dates: start: 20130507, end: 20130622
  8. BAKUMONDOUTO [Concomitant]
     Dosage: 1 G, 3X/DAY
     Route: 048
     Dates: start: 20130515, end: 20130622
  9. PANTOSIN [Concomitant]
     Dosage: 1 G, 3X/DAY
     Route: 048
     Dates: start: 20130402, end: 20130622
  10. MAGNESIUM OXIDE [Concomitant]
     Dosage: 0.67 G, 3X/DAY
     Route: 048
     Dates: start: 20130402, end: 20130622
  11. LOXONIN [Concomitant]
     Dosage: 200 MG, 1X/DAY
     Route: 062
     Dates: start: 20130505, end: 20130623
  12. AMOBAN [Concomitant]
     Dosage: 7.5 MG, 1X/DAY
     Route: 048
     Dates: start: 20130410, end: 20130622

REACTIONS (1)
  - Interstitial lung disease [Fatal]
